FAERS Safety Report 7984372-7 (Version None)
Quarter: 2011Q4

REPORT INFORMATION
  Report Type: 
  Country: None (occurrence: None)
  Receive Date: 20111216
  Receipt Date: 20111206
  Transmission Date: 20120403
  Serious: Yes (Other)
  Sender: FDA-Public Use
  Company Number: US-NAPPMUNDI-USA-2010-0049690

PATIENT
  Sex: Female

DRUGS (1)
  1. OXYCONTIN [Suspect]
     Indication: PAIN
     Dosage: 40 MG, TID
     Route: 048
     Dates: start: 20100801

REACTIONS (12)
  - PAIN [None]
  - HEADACHE [None]
  - NAUSEA [None]
  - ERUCTATION [None]
  - MENSTRUAL DISORDER [None]
  - HOT FLUSH [None]
  - DRUG INEFFECTIVE [None]
  - BLOOD CORTISOL ABNORMAL [None]
  - FLATULENCE [None]
  - GALACTORRHOEA [None]
  - URTICARIA [None]
  - INADEQUATE ANALGESIA [None]
